FAERS Safety Report 10150019 (Version 1)
Quarter: 2014Q2

REPORT INFORMATION
  Report Type: Spontaneous
  Country: US (occurrence: None)
  Receive Date: 20140501
  Receipt Date: 20140501
  Transmission Date: 20141212
  Serious: Yes (Hospitalization)
  Sender: FDA-Public Use
  Company Number: None

PATIENT
  Age: 68 Year
  Sex: Male

DRUGS (13)
  1. SULFAMETHOXAZOLE/TRIMETHOPRIM [Suspect]
     Indication: PROPHYLAXIS
     Dosage: 80/400, EVERY MON/WED/FRI, PO
     Route: 048
     Dates: start: 20131001, end: 20131007
  2. ASA [Concomitant]
  3. ATORVASTATIN [Concomitant]
  4. CALCIUM GLUCONATE [Concomitant]
  5. GANCICLOVIR [Concomitant]
  6. UHF [Concomitant]
  7. INSULIN ASPART [Concomitant]
  8. LANSOPRAZOLE [Concomitant]
  9. MAGNESIUM SULFATE [Concomitant]
  10. MULTIVITAMIN [Concomitant]
  11. MEDROXYPROGESTERONE [Concomitant]
  12. TACROLIMUS [Concomitant]
  13. PIPERACILLIN/TAZOBACTAM [Concomitant]

REACTIONS (3)
  - Diarrhoea [None]
  - Hyperkalaemia [None]
  - Renal failure acute [None]
